FAERS Safety Report 7892186-1 (Version None)
Quarter: 2011Q4

REPORT INFORMATION
  Report Type: 
  Country: None (occurrence: None)
  Receive Date: 20111104
  Receipt Date: 20111026
  Transmission Date: 20120403
  Serious: Yes (Other)
  Sender: FDA-Public Use
  Company Number: CA-ASTRAZENECA-2011SE65726

PATIENT
  Age: 74 Year
  Sex: Female

DRUGS (4)
  1. CALCIUM [Concomitant]
  2. CHOLESTEROL MEDICATIONS [Concomitant]
  3. DIABETIC MEDICATION [Concomitant]
  4. ARIMIDEX [Suspect]
     Route: 048

REACTIONS (4)
  - OSTEOPOROSIS [None]
  - NECK PAIN [None]
  - NEOPLASM MALIGNANT [None]
  - HEADACHE [None]
